FAERS Safety Report 20389760 (Version 7)
Quarter: 2022Q2

REPORT INFORMATION
  Report Type: Spontaneous
  Country: CA (occurrence: CA)
  Receive Date: 20220128
  Receipt Date: 20220622
  Transmission Date: 20220720
  Serious: Yes (Other)
  Sender: FDA-Public Use
  Company Number: CA-CELLTRION INC.-2021CA011584

PATIENT

DRUGS (4)
  1. INFLECTRA [Suspect]
     Active Substance: INFLIXIMAB-DYYB
     Indication: Colitis ulcerative
     Dosage: 500 MG, EVERY 6 WEEKS
     Route: 042
     Dates: start: 20200318
  2. INFLECTRA [Suspect]
     Active Substance: INFLIXIMAB-DYYB
     Dosage: 500 MG, EVERY 6 WEEKS
     Route: 042
     Dates: start: 20211030
  3. INFLECTRA [Suspect]
     Active Substance: INFLIXIMAB-DYYB
     Dosage: 500 MG, EVERY 6 WEEKS
     Route: 042
     Dates: start: 20211030
  4. INFLECTRA [Suspect]
     Active Substance: INFLIXIMAB-DYYB
     Dosage: 500 MG, EVERY 6 WEEKS
     Route: 042
     Dates: start: 20211211

REACTIONS (13)
  - Crush injury [Unknown]
  - Wound secretion [Unknown]
  - Wound complication [Unknown]
  - Off label use [Unknown]
  - Erythema [Unknown]
  - Feeling hot [Unknown]
  - Pain [Unknown]
  - Skin abrasion [Unknown]
  - Skin hyperpigmentation [Unknown]
  - Wound infection [Not Recovered/Not Resolved]
  - Impaired healing [Unknown]
  - Wound [Recovering/Resolving]
  - Skin ulcer [Unknown]

NARRATIVE: CASE EVENT DATE: 20200318
